APPROVED DRUG PRODUCT: LAROTID
Active Ingredient: AMOXICILLIN
Strength: 125MG/5ML
Dosage Form/Route: FOR SUSPENSION;ORAL
Application: A062226 | Product #003 | TE Code: AB
Applicant: US ANTIBIOTICS LLC
Approved: Approved Prior to Jan 1, 1982 | RLD: No | RS: No | Type: RX